FAERS Safety Report 5321653-X (Version None)
Quarter: 2007Q1

REPORT INFORMATION
  Report Type: 
  Country: None (occurrence: None)
  Receive Date: 20070220
  Receipt Date: 20060908
  Transmission Date: 20070707
  Serious: No
  Sender: FDA-Public Use
  Company Number: TPA2006A01550

PATIENT
  Age: 38 Year
  Sex: Female
  Weight: 74.3899 kg

DRUGS (3)
  1. ROZEREM [Suspect]
     Indication: SLEEP DISORDER
     Dosage: PER ORAL
     Route: 048
     Dates: start: 20060809, end: 20060826
  2. ZOLOFT [Concomitant]
  3. PRILOSEC [Concomitant]

REACTIONS (1)
  - LACTATION DISORDER [None]
